FAERS Safety Report 9789124 (Version 3)
Quarter: 2014Q1

REPORT INFORMATION
  Report Type: Spontaneous
  Country: AU (occurrence: AU)
  Receive Date: 20131230
  Receipt Date: 20140217
  Transmission Date: 20141002
  Serious: Yes (Other)
  Sender: FDA-Public Use
  Company Number: PHHY2013AU151530

PATIENT
  Age: 30 Year
  Sex: Female

DRUGS (7)
  1. CICLOSPORIN [Suspect]
     Indication: RENAL TRANSPLANT
  2. MYCOPHENOLATE MOFETIL [Suspect]
     Indication: RENAL TRANSPLANT
  3. TACROLIMUS [Suspect]
     Indication: RENAL TRANSPLANT
  4. CYCLOPHOSPHAMIDE [Suspect]
     Route: 048
  5. METHYLPREDNISOLONE [Concomitant]
     Indication: IMMUNOSUPPRESSION
     Dosage: 3 PULSES
     Route: 042
  6. PREDNISOLONE [Concomitant]
     Indication: IMMUNOSUPPRESSION
     Route: 048
  7. RITUXIMAB [Concomitant]
     Dosage: 500 MG, THREE FORTNIGHTLY DOSES

REACTIONS (10)
  - Glomerulonephritis membranoproliferative [Unknown]
  - Disease recurrence [Unknown]
  - Cystitis [Unknown]
  - Cytomegalovirus colitis [Unknown]
  - Kidney transplant rejection [Unknown]
  - Drug ineffective [Unknown]
  - Blood creatinine increased [Unknown]
  - Proteinuria [Unknown]
  - Complications of transplanted kidney [Unknown]
  - Renal injury [Unknown]
